FAERS Safety Report 19174209 (Version 4)
Quarter: 2021Q2

REPORT INFORMATION
  Report Type: Spontaneous
  Country: US (occurrence: US)
  Receive Date: 20210423
  Receipt Date: 20210623
  Transmission Date: 20210717
  Serious: Yes (Death)
  Sender: FDA-Public Use
  Company Number: US-PFIZER INC-2020395421

PATIENT
  Age: 86 Year
  Sex: Female

DRUGS (2)
  1. RETACRIT [Suspect]
     Active Substance: EPOETIN ALFA-EPBX
     Indication: ANAEMIA
     Dosage: 10000 IU/ML
  2. RETACRIT [Suspect]
     Active Substance: EPOETIN ALFA-EPBX
     Indication: CHRONIC KIDNEY DISEASE
     Dosage: 20000 IU, EVERY 2 WEEKS
     Route: 058

REACTIONS (6)
  - Drug ineffective [Unknown]
  - Respiratory failure [Fatal]
  - Off label use [Unknown]
  - COVID-19 [Fatal]
  - Cardiac failure congestive [Fatal]
  - Visual impairment [Unknown]
